FAERS Safety Report 7185278-6 (Version None)
Quarter: 2010Q4

REPORT INFORMATION
  Report Type: 
  Country: None (occurrence: None)
  Receive Date: 20101222
  Receipt Date: 20100602
  Transmission Date: 20110411
  Serious: Yes (Hospitalization)
  Sender: FDA-Public Use
  Company Number: US-AMGEN-KDL415924

PATIENT

DRUGS (8)
  1. ENBREL [Suspect]
     Indication: PRODUCT USED FOR UNKNOWN INDICATION
     Dosage: 50 MG, QWK
     Route: 058
     Dates: start: 20100501
  2. CYCLOBENZAPRINE HCL [Concomitant]
     Dosage: 10 MG, UNK
  3. PREDNISONE [Concomitant]
     Dosage: 5 MG, UNK
  4. TRAZODONE HCL [Concomitant]
     Dosage: 100 MG, UNK
  5. OMEPRAZOLE [Concomitant]
     Dosage: 40 MG, UNK
  6. CELEXA [Concomitant]
     Dosage: 40 MG, UNK
  7. MORPHINE SULFATE [Concomitant]
     Dosage: 60 MG, UNK
  8. UNSPECIFIED MEDICATION [Concomitant]
     Dosage: 250 MG, UNK

REACTIONS (1)
  - PULMONARY EMBOLISM [None]
